FAERS Safety Report 17741242 (Version 1)
Quarter: 2020Q2

REPORT INFORMATION
  Report Type: Spontaneous
  Country: ES (occurrence: ES)
  Receive Date: 20200504
  Receipt Date: 20200504
  Transmission Date: 20200714
  Serious: Yes (Hospitalization)
  Sender: FDA-Public Use
  Company Number: NVSC2020ES116102

PATIENT
  Age: 92 Year
  Sex: Female

DRUGS (4)
  1. NEO TOMIZOL [Interacting]
     Active Substance: CARBIMAZOLE
     Indication: HYPERTHYROIDISM
     Dosage: 5 MG, QD ( 5 MG COMPRIMIDOS, 50 COMPRIMIDOS)
     Route: 048
     Dates: start: 2017, end: 20191212
  2. ENALAPRIL MALEATE. [Suspect]
     Active Substance: ENALAPRIL MALEATE
     Indication: HYPERTENSION
     Dosage: 2.5 MG, QD
     Route: 048
     Dates: start: 20140615, end: 20191208
  3. FUROSEMIDE. [Interacting]
     Active Substance: FUROSEMIDE
     Indication: CARDIAC FAILURE
     Dosage: 40 MG, QD
     Route: 048
     Dates: start: 201908, end: 20191208
  4. CARVEDILOL. [Interacting]
     Active Substance: CARVEDILOL
     Indication: ATRIAL FIBRILLATION
     Dosage: 6.25 MG, QD
     Route: 048
     Dates: start: 2015, end: 20191208

REACTIONS (2)
  - Acute kidney injury [Recovered/Resolved]
  - Atrioventricular block [Recovered/Resolved]

NARRATIVE: CASE EVENT DATE: 20191208
